FAERS Safety Report 23963878 (Version 1)
Quarter: 2024Q2

REPORT INFORMATION
  Report Type: Spontaneous
  Country: US (occurrence: US)
  Receive Date: 20240611
  Receipt Date: 20240611
  Transmission Date: 20240716
  Serious: No
  Sender: FDA-Public Use
  Company Number: US-Calliditas-2024CAL00903

PATIENT
  Age: 84 Year
  Sex: Female

DRUGS (1)
  1. TARPEYO [Suspect]
     Active Substance: BUDESONIDE
     Indication: IgA nephropathy
     Route: 048
     Dates: start: 20230909

REACTIONS (4)
  - Nasopharyngitis [Unknown]
  - Chills [Unknown]
  - Sluggishness [Unknown]
  - COVID-19 [Unknown]
